FAERS Safety Report 9297278 (Version 1)
Quarter: 2013Q2

REPORT INFORMATION
  Report Type: Spontaneous
  Country: US (occurrence: US)
  Receive Date: 20130520
  Receipt Date: 20130520
  Transmission Date: 20140414
  Serious: No
  Sender: FDA-Public Use
  Company Number: US-BIOGENIDEC-2013BI044046

PATIENT
  Age: 53 Year
  Sex: Female

DRUGS (5)
  1. TYSABRI [Suspect]
     Indication: MULTIPLE SCLEROSIS
     Route: 042
     Dates: start: 20080718
  2. IV STEROIDS [Concomitant]
     Indication: MULTIPLE SCLEROSIS RELAPSE
  3. AXAR (NOS) [Concomitant]
     Indication: MULTIPLE SCLEROSIS RELAPSE
  4. IV PAIN MEDICATION [Concomitant]
     Indication: MYALGIA
  5. HYDROCODONE [Concomitant]
     Indication: MYALGIA

REACTIONS (8)
  - Hearing impaired [Not Recovered/Not Resolved]
  - Mobility decreased [Not Recovered/Not Resolved]
  - Joint swelling [Recovered/Resolved]
  - Dysarthria [Recovered/Resolved]
  - Facial pain [Unknown]
  - Swelling face [Recovered/Resolved]
  - Depressed mood [Not Recovered/Not Resolved]
  - General symptom [Unknown]
